FAERS Safety Report 13687828 (Version 1)
Quarter: 2017Q2

REPORT INFORMATION
  Report Type: Spontaneous
  Country: GB (occurrence: GB)
  Receive Date: 20170626
  Receipt Date: 20170626
  Transmission Date: 20170830
  Serious: Yes (Life-Threatening, Other)
  Sender: FDA-Public Use
  Company Number: GB-MYLANLABS-2017M1036800

PATIENT

DRUGS (13)
  1. VENLAFAXINE [Suspect]
     Active Substance: VENLAFAXINE HYDROCHLORIDE
     Indication: DEPRESSION
     Route: 048
     Dates: start: 20170527, end: 20170602
  2. OMEPRAZOLE. [Concomitant]
     Active Substance: OMEPRAZOLE
  3. SYMBICORT [Concomitant]
     Active Substance: BUDESONIDE\FORMOTEROL FUMARATE DIHYDRATE
  4. TRAZODONE [Concomitant]
     Active Substance: TRAZODONE HYDROCHLORIDE
  5. DIAZEPAM. [Concomitant]
     Active Substance: DIAZEPAM
  6. HALOPERIDOL. [Concomitant]
     Active Substance: HALOPERIDOL
  7. IBUPROFEN. [Concomitant]
     Active Substance: IBUPROFEN
  8. PARACETAMOL [Concomitant]
     Active Substance: ACETAMINOPHEN
  9. PROMETHAZINE [Concomitant]
     Active Substance: PROMETHAZINE\PROMETHAZINE HYDROCHLORIDE
  10. VENLAFAXIN [Suspect]
     Active Substance: VENLAFAXINE HYDROCHLORIDE
     Indication: DEPRESSION
     Route: 048
     Dates: start: 20170603
  11. GAVISCON [Concomitant]
     Active Substance: ALUMINUM HYDROXIDE\MAGNESIUM CARBONATE
  12. LORAZEPAM. [Concomitant]
     Active Substance: LORAZEPAM
  13. COLECALCIFEROL [Concomitant]
     Active Substance: CHOLECALCIFEROL

REACTIONS (3)
  - Suicide attempt [Not Recovered/Not Resolved]
  - Incorrect product formulation administered [Unknown]
  - Drug dispensing error [Unknown]

NARRATIVE: CASE EVENT DATE: 20170603
